FAERS Safety Report 21940520 (Version 1)
Quarter: 2023Q1

REPORT INFORMATION
  Report Type: Report from Study
  Country: US (occurrence: US)
  Receive Date: 20230201
  Receipt Date: 20230201
  Transmission Date: 20230418
  Serious: No
  Sender: FDA-Public Use
  Company Number: US-EXELIXIS-CABO-22051629

PATIENT
  Sex: Female
  Weight: 81.633 kg

DRUGS (12)
  1. CABOMETYX [Suspect]
     Active Substance: CABOZANTINIB S-MALATE
     Indication: Renal cancer
     Dosage: 40 MG, QD
     Route: 048
     Dates: start: 202203
  2. LEVOTHYROXINE [Concomitant]
     Active Substance: LEVOTHYROXINE
  3. POTASSIUM CHLORIDE [Concomitant]
     Active Substance: POTASSIUM CHLORIDE
  4. TYLENOL [Concomitant]
     Active Substance: ACETAMINOPHEN
  5. IMODIUM [Concomitant]
     Active Substance: LOPERAMIDE HYDROCHLORIDE
  6. OMEPRAZOLE [Concomitant]
     Active Substance: OMEPRAZOLE
  7. LORAZEPAM [Concomitant]
     Active Substance: LORAZEPAM
  8. PROBIOTICS NOS [Concomitant]
     Active Substance: PROBIOTICS NOS
  9. IRON [Concomitant]
     Active Substance: IRON
  10. VITAMIN C [Concomitant]
     Active Substance: ASCORBIC ACID
  11. METOPROLOL SUCCINATE [Concomitant]
     Active Substance: METOPROLOL SUCCINATE
  12. AMLODIPINE BESYLATE;BENAZEPRIL [Concomitant]

REACTIONS (4)
  - Exostosis [Unknown]
  - Food allergy [Unknown]
  - Diarrhoea [Unknown]
  - Dysgeusia [Unknown]
